FAERS Safety Report 11451973 (Version 1)
Quarter: 2015Q3

REPORT INFORMATION
  Report Type: Spontaneous
  Country: US (occurrence: None)
  Receive Date: 20150902
  Receipt Date: 20150902
  Transmission Date: 20151125
  Serious: Yes (Other)
  Sender: FDA-Public Use
  Company Number: None

PATIENT
  Age: 53 Year
  Sex: Female
  Weight: 77.11 kg

DRUGS (9)
  1. LORATADINE 10 MG SANDOZ [Suspect]
     Active Substance: LORATADINE
     Indication: RASH
     Dosage: TAKE 1 BY MOUTH A DAY  ONCE DA ILY  TAKEN BY MOUTH
     Route: 048
     Dates: end: 20150825
  2. MULTI VITAMIN [Concomitant]
     Active Substance: VITAMINS
  3. LORATADINE 10 MG SANDOZ [Suspect]
     Active Substance: LORATADINE
     Indication: URTICARIA
     Dosage: TAKE 1 BY MOUTH A DAY  ONCE DA ILY  TAKEN BY MOUTH
     Route: 048
     Dates: end: 20150825
  4. NABUMETONE. [Concomitant]
     Active Substance: NABUMETONE
  5. VITAMIN E [Concomitant]
     Active Substance: .ALPHA.-TOCOPHEROL
  6. FLAXSEED [Concomitant]
     Active Substance: FLAX SEED
  7. FISH OIL [Concomitant]
     Active Substance: FISH OIL
  8. MAXALT [Concomitant]
     Active Substance: RIZATRIPTAN BENZOATE
  9. EXCEDRINE [Concomitant]

REACTIONS (4)
  - Insomnia [None]
  - Migraine [None]
  - Nausea [None]
  - Pain [None]

NARRATIVE: CASE EVENT DATE: 20150829
